FAERS Safety Report 12327768 (Version 1)
Quarter: 2016Q2

REPORT INFORMATION
  Report Type: Spontaneous
  Country: US (occurrence: None)
  Receive Date: 20160502
  Receipt Date: 20160502
  Transmission Date: 20160815
  Serious: Yes (Life-Threatening, Other)
  Sender: FDA-Public Use
  Company Number: None

PATIENT
  Age: 54 Year
  Sex: Male
  Weight: 132.3 kg

DRUGS (2)
  1. REGADENOSON [Suspect]
     Active Substance: REGADENOSON
     Indication: CARDIAC STRESS TEST
     Route: 042
     Dates: start: 20151211, end: 20151211
  2. REGADENOSON [Suspect]
     Active Substance: REGADENOSON
     Indication: SCAN MYOCARDIAL PERFUSION
     Route: 042
     Dates: start: 20151211, end: 20151211

REACTIONS (10)
  - Muscle contractions involuntary [None]
  - Blood pressure systolic increased [None]
  - Hyperhidrosis [None]
  - Contrast media reaction [None]
  - Muscle spasms [None]
  - Unresponsive to stimuli [None]
  - Dystonia [None]
  - Erythema [None]
  - Heart rate increased [None]
  - Neck pain [None]

NARRATIVE: CASE EVENT DATE: 20151211
